FAERS Safety Report 6887257-2 (Version None)
Quarter: 2010Q3

REPORT INFORMATION
  Report Type: 
  Country: None (occurrence: None)
  Receive Date: 20100730
  Receipt Date: 20100721
  Transmission Date: 20110219
  Serious: Yes (Other)
  Sender: FDA-Public Use
  Company Number: US-JNJCH-2010017110

PATIENT
  Age: 10 Year
  Sex: Male
  Weight: 56.7 kg

DRUGS (1)
  1. LUBRIDERM INTENSE SKIN REPAIR BODY LOTION [Suspect]
     Indication: DRY SKIN
     Dosage: TEXT:ONCE
     Route: 061
     Dates: start: 20100720, end: 20100720

REACTIONS (2)
  - APPLICATION SITE BURN [None]
  - APPLICATION SITE RASH [None]
